FAERS Safety Report 6686136-3 (Version None)
Quarter: 2010Q2

REPORT INFORMATION
  Report Type: 
  Country: None (occurrence: None)
  Receive Date: 20100419
  Receipt Date: 20100406
  Transmission Date: 20101027
  Serious: Yes (Other)
  Sender: FDA-Public Use
  Company Number: PHHY2010US21188

PATIENT
  Sex: Female

DRUGS (22)
  1. DIOVAN [Suspect]
     Indication: HYPERTENSION
     Dosage: 160 MG DAILY
     Route: 048
     Dates: start: 20020101
  2. ZANAFLEX [Suspect]
     Indication: MUSCLE SPASMS
     Dosage: 2 MG, BID
     Route: 048
     Dates: start: 20090101
  3. METFORMIN HCL [Suspect]
     Indication: DIABETES MELLITUS
     Dosage: 500 MG DAILY
     Route: 048
  4. NITROLINGUAL [Suspect]
     Indication: CHEST PAIN
     Dosage: 0.4 MG SPRAY AS NEEDED
  5. ZYRTEC [Suspect]
     Indication: HYPERSENSITIVITY
     Dosage: 10 MG, QD
     Route: 048
     Dates: start: 20090101
  6. GABAPENTIN [Suspect]
     Indication: DIABETIC NEUROPATHY
     Dosage: 2 DF, TID
     Route: 048
     Dates: start: 20040101
  7. VICODIN [Suspect]
     Indication: ARTHRALGIA
     Dosage: 1 DF, Q4H
     Route: 048
     Dates: start: 20060101
  8. BUPROPION [Suspect]
     Indication: DEPRESSION
     Dosage: 300 MG DAILY
     Route: 048
  9. LOZOL [Suspect]
     Indication: FLUID RETENTION
     Dosage: 1.25 MG DAILY
     Route: 048
     Dates: start: 20020101
  10. JANUMET [Suspect]
     Indication: DIABETES MELLITUS
     Dosage: 500/50 MG DAILY
     Route: 048
  11. KLONOPIN [Suspect]
     Indication: ANXIETY
     Dosage: 0.5 MG, BID
     Route: 048
  12. PRILOSEC [Suspect]
     Indication: GASTROOESOPHAGEAL REFLUX DISEASE
     Dosage: 20 MG, BID
     Route: 048
  13. CARAFATE [Suspect]
     Indication: GASTROOESOPHAGEAL REFLUX DISEASE
     Dosage: 1 G, BID
     Route: 048
  14. AGGRENOX [Suspect]
     Indication: ANGIOPATHY
     Dosage: TWO TIMES A DAY
     Route: 048
     Dates: start: 20090101
  15. FLONASE [Suspect]
     Indication: HYPERSENSITIVITY
     Dosage: 50 MCG TWO SPRAYS PER NOSTRIL DAILY
     Route: 045
  16. FLOVENT [Suspect]
     Indication: ASTHMA
     Dosage: 110 MCG, 2 PUFFS 2 TIMES PER DAY
  17. VENTOLIN [Suspect]
     Indication: ASTHMA
     Dosage: 90 MCG, 2 PUFFS EVERY 2 HRS
  18. IMITREX [Suspect]
     Indication: MIGRAINE
     Dosage: 100 MG, PRN
     Route: 048
  19. EPIPEN [Suspect]
     Indication: HYPERSENSITIVITY
     Dosage: UNK
     Route: 062
  20. LORTAB [Suspect]
     Dosage: UNK
     Route: 048
  21. SIMVASTATIN [Suspect]
     Dosage: UNK
  22. MULTI-VITAMINS [Suspect]
     Dosage: UNK

REACTIONS (2)
  - MEMORY IMPAIRMENT [None]
  - MYOCARDIAL INFARCTION [None]
